FAERS Safety Report 20677089 (Version 2)
Quarter: 2022Q2

REPORT INFORMATION
  Report Type: Spontaneous
  Country: US (occurrence: US)
  Receive Date: 20220406
  Receipt Date: 20220602
  Transmission Date: 20220720
  Serious: Yes (Other)
  Sender: FDA-Public Use
  Company Number: US-JNJFOC-20220401286

PATIENT
  Age: 5 Decade
  Sex: Female

DRUGS (3)
  1. ELMIRON [Suspect]
     Active Substance: PENTOSAN POLYSULFATE SODIUM
     Indication: Cystitis interstitial
     Route: 048
     Dates: start: 2005
  2. ELMIRON [Suspect]
     Active Substance: PENTOSAN POLYSULFATE SODIUM
     Route: 048
     Dates: start: 2006, end: 2012
  3. CITALOPRAM [Concomitant]
     Active Substance: CITALOPRAM HYDROBROMIDE
     Indication: Affective disorder
     Dates: start: 1999, end: 2015

REACTIONS (2)
  - Retinal dystrophy [Not Recovered/Not Resolved]
  - Maculopathy [Unknown]

NARRATIVE: CASE EVENT DATE: 20090101
